FAERS Safety Report 4441182-5 (Version None)
Quarter: 2004Q3

REPORT INFORMATION
  Report Type: 
  Country: None (occurrence: None)
  Receive Date: 20040728
  Receipt Date: 20040504
  Transmission Date: 20050211
  Serious: No
  Sender: FDA-Public Use
  Company Number: US_0405102911

PATIENT
  Age: 53 Year
  Sex: Female
  Weight: 61 kg

DRUGS (5)
  1. STRATTERA [Suspect]
     Indication: ATTENTION DEFICIT/HYPERACTIVITY DISORDER
     Dosage: 40 MG DAY
     Dates: start: 20040503
  2. EASPIN (ACETYLSALICYLIC ACID) [Concomitant]
  3. PAMABROM [Concomitant]
  4. MULTI-VITAMIN [Concomitant]
  5. GLUCOSAMINE [Concomitant]

REACTIONS (6)
  - ABDOMINAL DISTENSION [None]
  - CHILLS [None]
  - FATIGUE [None]
  - INSOMNIA [None]
  - NAUSEA [None]
  - TREMOR [None]
